FAERS Safety Report 4867708-5 (Version None)
Quarter: 2005Q4

REPORT INFORMATION
  Report Type: 
  Country: None (occurrence: None)
  Receive Date: 20051222
  Receipt Date: 20020413
  Transmission Date: 20060501
  Serious: Yes (Hospitalization, Other)
  Sender: FDA-Public Use
  Company Number: 8-99125-221A

PATIENT
  Age: 65 Year
  Sex: Female

DRUGS (1)
  1. MYLOTARG [Suspect]
     Indication: ACUTE MYELOID LEUKAEMIA
     Dosage: 9 MG/M(2), INTRAVENOUS
     Route: 042
     Dates: start: 19980417, end: 19980501

REACTIONS (4)
  - CELLULITIS [None]
  - CHILLS [None]
  - NAUSEA [None]
  - PYREXIA [None]
